FAERS Safety Report 19132801 (Version 1)
Quarter: 2021Q2

REPORT INFORMATION
  Report Type: Spontaneous
  Country: CA (occurrence: CA)
  Receive Date: 20210413
  Receipt Date: 20210413
  Transmission Date: 20210717
  Serious: Yes (Life-Threatening, Other)
  Sender: FDA-Public Use
  Company Number: CA-PFIZER INC-2021382709

PATIENT
  Age: 14 Year
  Sex: Male
  Weight: 43 kg

DRUGS (38)
  1. DIPHENHYDRAMINE. [Concomitant]
     Active Substance: DIPHENHYDRAMINE
  2. HYDROXYZINE [Concomitant]
     Active Substance: HYDROXYZINE HYDROCHLORIDE
  3. ONDANSETRON [Concomitant]
     Active Substance: ONDANSETRON
  4. RANITIDINE. [Concomitant]
     Active Substance: RANITIDINE
  5. ACETAMINOPHEN. [Concomitant]
     Active Substance: ACETAMINOPHEN
     Dosage: UNK
  6. ALLOPURINOL. [Concomitant]
     Active Substance: ALLOPURINOL
  7. MAGNESIUM [Concomitant]
     Active Substance: MAGNESIUM
  8. PENTAMIDINE ISETHIONATE. [Concomitant]
     Active Substance: PENTAMIDINE ISETHIONATE
  9. METHOTREXATE SODIUM. [Suspect]
     Active Substance: METHOTREXATE SODIUM
     Dosage: 10.6 G
     Route: 042
  10. RITUXAN [Suspect]
     Active Substance: RITUXIMAB
     Dosage: 520 MG
     Route: 042
  11. PIPERACILLIN/TAZOBACTAM [Concomitant]
     Active Substance: PIPERACILLIN SODIUM\TAZOBACTAM SODIUM
  12. SODIUM PHOSPHATE [Concomitant]
     Active Substance: SODIUM PHOSPHATE
  13. METHOTREXATE SODIUM. [Suspect]
     Active Substance: METHOTREXATE SODIUM
     Indication: BURKITT^S LYMPHOMA
     Dosage: 10.4 G
     Route: 042
  14. CYCLOPHOSPHAMIDE. [Suspect]
     Active Substance: CYCLOPHOSPHAMIDE
     Indication: BURKITT^S LYMPHOMA
     Dosage: 420 MG
     Route: 042
  15. HYDROCORTISONE. [Concomitant]
     Active Substance: HYDROCORTISONE
  16. CYCLOPHOSPHAMIDE. [Suspect]
     Active Substance: CYCLOPHOSPHAMIDE
     Dosage: 350 MG 1 EVERY 12 HOURS
     Route: 042
  17. DOXORUBICIN HYDROCHLORIDE INJECTION [Suspect]
     Active Substance: DOXORUBICIN HYDROCHLORIDE
     Dosage: 84 MG
     Route: 042
  18. EPINEPHRINE. [Concomitant]
     Active Substance: EPINEPHRINE
  19. OLANZAPINE. [Concomitant]
     Active Substance: OLANZAPINE
  20. POLYETHYLENE GLYCOL [MACROGOL] [Concomitant]
     Active Substance: POLYETHYLENE GLYCOLS
  21. VINCRISTINE SULFATE. [Suspect]
     Active Substance: VINCRISTINE SULFATE
     Indication: BURKITT^S LYMPHOMA
     Dosage: 2.0 MG
     Route: 042
  22. VINCRISTINE SULFATE. [Suspect]
     Active Substance: VINCRISTINE SULFATE
     Dosage: 1.4 MG
     Route: 042
  23. RITUXAN [Suspect]
     Active Substance: RITUXIMAB
     Indication: BURKITT^S LYMPHOMA
     Dosage: 490 MG
     Route: 042
  24. ACYCLOVIR [ACICLOVIR] [Concomitant]
     Active Substance: ACYCLOVIR
     Dosage: UNK
  25. CEFTAZIDIME. [Concomitant]
     Active Substance: CEFTAZIDIME
  26. CYTARABINE INJECTION [Concomitant]
     Active Substance: CYTARABINE
  27. FLUCONAZOLE. [Concomitant]
     Active Substance: FLUCONAZOLE
  28. PREDNISONE. [Concomitant]
     Active Substance: PREDNISONE
  29. VALACYCLOVIR [Concomitant]
     Active Substance: VALACYCLOVIR HYDROCHLORIDE
  30. LEUCOVORIN [FOLINIC ACID] [Concomitant]
     Active Substance: LEUCOVORIN
  31. VANCOMYCIN [Concomitant]
     Active Substance: VANCOMYCIN
  32. ZINC. [Concomitant]
     Active Substance: ZINC
  33. DOXORUBICIN HYDROCHLORIDE INJECTION [Suspect]
     Active Substance: DOXORUBICIN HYDROCHLORIDE
     Indication: BURKITT^S LYMPHOMA
     Dosage: 78 MG
     Route: 042
  34. ALTEPLASE. [Concomitant]
     Active Substance: ALTEPLASE
  35. FASTURTEC [Concomitant]
     Active Substance: RASBURICASE
  36. FUROSEMIDE. [Concomitant]
     Active Substance: FUROSEMIDE
  37. METHYLPREDNISOLONE. [Concomitant]
     Active Substance: METHYLPREDNISOLONE
  38. POTASSIUM [Concomitant]
     Active Substance: POTASSIUM

REACTIONS (2)
  - Aplastic anaemia [Recovered/Resolved]
  - Stomatitis [Recovered/Resolved]
